FAERS Safety Report 24704005 (Version 1)
Quarter: 2024Q4

REPORT INFORMATION
  Report Type: Spontaneous
  Country: AR (occurrence: AR)
  Receive Date: 20241206
  Receipt Date: 20241206
  Transmission Date: 20250114
  Serious: Yes (Other)
  Sender: SANDOZ
  Company Number: AR-SANDOZ-SDZ2024AR001437

PATIENT
  Age: 46 Year
  Sex: Female

DRUGS (1)
  1. HYRIMOZ [Suspect]
     Active Substance: ADALIMUMAB-ADAZ
     Indication: Rheumatoid arthritis
     Dosage: 40 MG 1 EVERY 14 DAYS
     Route: 058
     Dates: start: 20231224

REACTIONS (2)
  - Surgery [Unknown]
  - Injection site pain [Unknown]

NARRATIVE: CASE EVENT DATE: 20231224
